FAERS Safety Report 8677869 (Version 2)
Quarter: 2012Q4

REPORT INFORMATION
  Report Type: 
  Country: US (occurrence: US)
  Receive Date: 20120723
  Receipt Date: 20120831
  Transmission Date: 20130627
  Serious: Yes (Other)
  Sender: FDA-Public Use
  Company Number: PHEH2012US014188

PATIENT
  Sex: Female

DRUGS (4)
  1. DIOVAN [Suspect]
     Indication: BLOOD PRESSURE
     Dosage: 320 mg, QD
     Route: 048
  2. ATENOLOL [Concomitant]
     Indication: BLOOD PRESSURE
     Dosage: 100 mg, QD
     Route: 048
  3. NORVASC [Concomitant]
     Indication: BLOOD PRESSURE
     Dosage: 10 mg, QD
     Route: 048
  4. SIMVASTATIN [Concomitant]
     Indication: BLOOD CHOLESTEROL
     Dosage: 10 mg, QD
     Route: 048

REACTIONS (1)
  - Coeliac disease [Unknown]
